FAERS Safety Report 4843879-1 (Version None)
Quarter: 2005Q4

REPORT INFORMATION
  Report Type: 
  Country: None (occurrence: None)
  Receive Date: 20051129
  Receipt Date: 20051111
  Transmission Date: 20060501
  Serious: Yes (Death)
  Sender: FDA-Public Use
  Company Number: KR-2005-024513

PATIENT
  Age: 65 Year
  Sex: Male

DRUGS (3)
  1. FLUDARABINE PHOSPHAT (SH L 573) (FLUDARABINE PHOSPHATE) INJECTION [Suspect]
     Indication: WALDENSTROM'S MACROGLOBULINAEMIA
     Dosage: 25 MG/M2, 3 CYCLES ON DAYS 1?5 E INTRAVENOUS
     Route: 042
  2. CHLORAMBUCIL (CHLORAMBUCIL) [Suspect]
     Dosage: 0.2 MG/KG, DAYS 1?5 EVERY 28 DAYS
  3. PREDNISOLONE [Concomitant]

REACTIONS (6)
  - BLOOD LACTATE DEHYDROGENASE INCREASED [None]
  - BREATH SOUNDS ABNORMAL [None]
  - MARROW HYPERPLASIA [None]
  - MYELODYSPLASTIC SYNDROME [None]
  - PLEURAL EFFUSION [None]
  - WALDENSTROM'S MACROGLOBULINAEMIA [None]
